FAERS Safety Report 11461994 (Version 1)
Quarter: 2015Q3

REPORT INFORMATION
  Report Type: Spontaneous
  Country: US (occurrence: US)
  Receive Date: 20150831
  Receipt Date: 20150831
  Transmission Date: 20151125
  Serious: No
  Sender: FDA-Public Use
  Company Number: US-ELI_LILLY_AND_COMPANY-US201009004233

PATIENT
  Sex: Male

DRUGS (4)
  1. CYMBALTA [Suspect]
     Active Substance: DULOXETINE HYDROCHLORIDE
     Indication: DEPRESSION
     Dosage: 20 MG, EACH MORNING
     Dates: start: 20090301
  2. AMBIEN [Concomitant]
     Active Substance: ZOLPIDEM TARTRATE
  3. ATIVAN [Concomitant]
     Active Substance: LORAZEPAM
  4. CYMBALTA [Suspect]
     Active Substance: DULOXETINE HYDROCHLORIDE
     Dosage: 20 MG, EACH EVENING

REACTIONS (8)
  - Infection [Recovered/Resolved]
  - Sneezing [Unknown]
  - Salivary gland pain [Recovering/Resolving]
  - Epistaxis [Unknown]
  - Noninfective sialoadenitis [Not Recovered/Not Resolved]
  - Rhinorrhoea [Unknown]
  - Dysphonia [Unknown]
  - Dehydration [Unknown]
